APPROVED DRUG PRODUCT: TRIAMCINOLONE ACETONIDE
Active Ingredient: TRIAMCINOLONE ACETONIDE
Strength: 0.5%
Dosage Form/Route: OINTMENT;TOPICAL
Application: A206379 | Product #001
Applicant: GLENMARK PHARMACEUTICALS LTD
Approved: Jul 22, 2016 | RLD: No | RS: No | Type: DISCN